FAERS Safety Report 7128695-2 (Version None)
Quarter: 2010Q4

REPORT INFORMATION
  Report Type: 
  Country: None (occurrence: None)
  Receive Date: 20101130
  Receipt Date: 20101118
  Transmission Date: 20110411
  Serious: Yes (Other)
  Sender: FDA-Public Use
  Company Number: US-JNJFOC-20101107481

PATIENT
  Sex: Male
  Weight: 19.05 kg

DRUGS (1)
  1. CONCERTA [Suspect]
     Indication: ATTENTION DEFICIT/HYPERACTIVITY DISORDER
     Route: 048

REACTIONS (4)
  - DRUG PRESCRIBING ERROR [None]
  - DYSKINESIA [None]
  - HEADACHE [None]
  - INTENTIONAL SELF-INJURY [None]
